FAERS Safety Report 6811993-7 (Version None)
Quarter: 2010Q3

REPORT INFORMATION
  Report Type: 
  Country: None (occurrence: None)
  Receive Date: 20100701
  Receipt Date: 20100617
  Transmission Date: 20110219
  Serious: Yes (Other)
  Sender: FDA-Public Use
  Company Number: PHHY2010US39924

PATIENT
  Sex: Female

DRUGS (8)
  1. DIOVAN [Suspect]
     Dosage: 320 MG
  2. DIAZEPAM [Concomitant]
  3. KLOR-CON [Concomitant]
  4. RANITIDINE [Concomitant]
  5. LISINOPRIL [Concomitant]
  6. OXCARBAZEPINE [Concomitant]
  7. SIMVASTATIN [Concomitant]
  8. FOSAMAX [Concomitant]

REACTIONS (4)
  - CONFUSIONAL STATE [None]
  - CONVULSION [None]
  - HEADACHE [None]
  - WEIGHT INCREASED [None]
